FAERS Safety Report 14766457 (Version 2)
Quarter: 2018Q2

REPORT INFORMATION
  Report Type: Spontaneous
  Country: US (occurrence: US)
  Receive Date: 20180416
  Receipt Date: 20180510
  Transmission Date: 20180711
  Serious: No
  Sender: FDA-Public Use
  Company Number: US-009507513-1804USA006842

PATIENT
  Age: 25 Year
  Sex: Female

DRUGS (1)
  1. NEXPLANON [Suspect]
     Active Substance: ETONOGESTREL
     Indication: CONTRACEPTION
     Dosage: 1 DF, UNK
     Route: 059
     Dates: start: 201801, end: 2018

REACTIONS (4)
  - Implant site erythema [Unknown]
  - Implant site bruising [Unknown]
  - Injection site swelling [Unknown]
  - Injection site pustule [Unknown]

NARRATIVE: CASE EVENT DATE: 2018
